FAERS Safety Report 17562666 (Version 1)
Quarter: 2020Q1

REPORT INFORMATION
  Report Type: Spontaneous
  Country: FR (occurrence: FR)
  Receive Date: 20200319
  Receipt Date: 20200319
  Transmission Date: 20200409
  Serious: Yes (Hospitalization)
  Sender: FDA-Public Use
  Company Number: FR-MYLANLABS-2020M1028849

PATIENT
  Age: 54 Year
  Sex: Male
  Weight: 65 kg

DRUGS (4)
  1. XENETIX 300 [Suspect]
     Active Substance: IOBITRIDOL
     Indication: SCAN
     Dosage: 70ML LE 24/06 ET 50ML LE 30/06
     Route: 042
     Dates: start: 20160624, end: 20160630
  2. LASILIX                            /00032601/ [Suspect]
     Active Substance: FUROSEMIDE
     Indication: ORGAN FAILURE
     Dosage: UNK
     Route: 065
     Dates: start: 20160623, end: 20160705
  3. VIREAD [Suspect]
     Active Substance: TENOFOVIR DISOPROXIL FUMARATE
     Indication: HEPATITIS B VIRUS TEST POSITIVE
     Dosage: 245 MILLIGRAM, QD
     Route: 048
     Dates: end: 20160711
  4. VANCOMYCIN [Suspect]
     Active Substance: VANCOMYCIN
     Indication: STAPHYLOCOCCAL BACTERAEMIA
     Dosage: UNK
     Route: 042
     Dates: start: 20160630, end: 20160707

REACTIONS (1)
  - Acute kidney injury [Recovered/Resolved]

NARRATIVE: CASE EVENT DATE: 201607
